FAERS Safety Report 9315692 (Version 1)
Quarter: 2013Q2

REPORT INFORMATION
  Report Type: Spontaneous
  Country: BR (occurrence: BR)
  Receive Date: 20130529
  Receipt Date: 20130529
  Transmission Date: 20140414
  Serious: Yes (Other)
  Sender: FDA-Public Use
  Company Number: BR-ELI_LILLY_AND_COMPANY-BR201305005699

PATIENT
  Age: 62 Year
  Sex: Female
  Weight: 66 kg

DRUGS (14)
  1. HUMULIN NPH [Suspect]
     Indication: DIABETES MELLITUS
     Dosage: 20 IU, EACH MORNING
     Route: 058
     Dates: start: 201301
  2. HUMULIN NPH [Suspect]
     Dosage: 14 IU, QD
     Route: 058
     Dates: start: 201301
  3. HUMULIN NPH [Suspect]
     Dosage: 14 IU, QD
     Route: 058
     Dates: start: 201301
  4. HUMULIN NPH [Suspect]
     Indication: DIABETES MELLITUS
     Dosage: 20 IU, EACH MORNING
     Route: 058
     Dates: start: 2003, end: 201301
  5. HUMULIN NPH [Suspect]
     Dosage: 14 IU, QD
     Route: 058
     Dates: start: 2003, end: 201301
  6. HUMULIN NPH [Suspect]
     Dosage: 14 IU, QD
     Route: 058
     Dates: start: 2003, end: 201301
  7. HUMULIN NPH [Suspect]
     Dosage: 20 IU, EACH MORNING
     Route: 058
  8. HUMULIN NPH [Suspect]
     Dosage: 14 IU, QD
     Route: 058
  9. HUMULIN NPH [Suspect]
     Dosage: 14 IU, QD
     Route: 058
  10. ASS [Concomitant]
     Dosage: UNK, UNKNOWN
     Route: 065
  11. NIFEDIPINA [Concomitant]
     Dosage: UNK, UNKNOWN
     Route: 065
  12. OMEPRAZOL [Concomitant]
     Dosage: UNK, UNKNOWN
     Route: 065
  13. ENALAPRIL [Concomitant]
     Dosage: UNK, UNKNOWN
     Route: 065
  14. ALPRAZOLAN [Concomitant]
     Dosage: UNK, UNKNOWN
     Route: 065

REACTIONS (7)
  - Infarction [Unknown]
  - Diabetic retinopathy [Unknown]
  - Abdominal pain [Unknown]
  - Abdominal distension [Not Recovered/Not Resolved]
  - Agitation [Unknown]
  - Hyperglycaemia [Not Recovered/Not Resolved]
  - Drug ineffective [Not Recovered/Not Resolved]
